FAERS Safety Report 25272173 (Version 1)
Quarter: 2025Q2

REPORT INFORMATION
  Report Type: Spontaneous
  Country: MA (occurrence: MA)
  Receive Date: 20250506
  Receipt Date: 20250506
  Transmission Date: 20250717
  Serious: Yes (Hospitalization, Other)
  Sender: EPIC PHARM
  Company Number: MA-EPICPHARMA-MA-2025EPCLIT00534

PATIENT
  Age: 68 Year
  Sex: Male

DRUGS (1)
  1. AMIODARONE HYDROCHLORIDE [Suspect]
     Active Substance: AMIODARONE HYDROCHLORIDE
     Indication: Arrhythmogenic right ventricular dysplasia
     Route: 048
     Dates: start: 2021

REACTIONS (6)
  - Neuromyopathy [Recovered/Resolved]
  - Toxicity to various agents [Recovered/Resolved]
  - Peripheral sensorimotor neuropathy [Recovered/Resolved]
  - Bundle branch block left [Recovered/Resolved]
  - Atrial fibrillation [Recovered/Resolved]
  - Product use in unapproved indication [Unknown]
